FAERS Safety Report 9027999 (Version 1)
Quarter: 2013Q1

REPORT INFORMATION
  Report Type: Report from Study
  Country: CA (occurrence: CA)
  Receive Date: 20130123
  Receipt Date: 20130123
  Transmission Date: 20140127
  Serious: Yes (Other)
  Sender: FDA-Public Use
  Company Number: CA-ROCHE-1180139

PATIENT
  Age: 73 Year
  Sex: Female
  Weight: 73.5 kg

DRUGS (3)
  1. XELODA [Suspect]
     Indication: COLON CANCER
     Route: 048
     Dates: start: 201210
  2. SYNTHROID [Concomitant]
     Indication: THYROID DISORDER
  3. LIPITOR [Concomitant]

REACTIONS (1)
  - Convulsion [Recovered/Resolved]
